FAERS Safety Report 6170303-1 (Version None)
Quarter: 2009Q2

REPORT INFORMATION
  Report Type: 
  Country: None (occurrence: None)
  Receive Date: 20090427
  Receipt Date: 20090427
  Transmission Date: 20091009
  Serious: No
  Sender: FDA-Public Use
  Company Number: None

PATIENT
  Age: 52 Year
  Sex: Female
  Weight: 73.4827 kg

DRUGS (3)
  1. EFFEXOR XR [Suspect]
     Indication: DEPRESSION
     Dosage: 37.5 MG DAILY (2X) ORAL
     Route: 048
     Dates: start: 20090328
  2. EFFEXOR XR [Suspect]
     Indication: DEPRESSION
     Dosage: 37.5 MG DAILY (2X) ORAL
     Route: 048
     Dates: start: 20090329
  3. LEXAPRO [Suspect]
     Dosage: 10 MG 1 X ORAL
     Route: 048
     Dates: start: 20090401

REACTIONS (11)
  - ANOREXIA [None]
  - DEPRESSION [None]
  - DYSGEUSIA [None]
  - FATIGUE [None]
  - HYPOPHAGIA [None]
  - IRRITABILITY [None]
  - LETHARGY [None]
  - MENTAL IMPAIRMENT [None]
  - POLLAKIURIA [None]
  - TONGUE DISCOLOURATION [None]
  - VOMITING [None]
